FAERS Safety Report 16214947 (Version 1)
Quarter: 2019Q2

REPORT INFORMATION
  Report Type: Spontaneous
  Country: US (occurrence: US)
  Receive Date: 20190418
  Receipt Date: 20190418
  Transmission Date: 20190711
  Serious: No
  Sender: FDA-Public Use
  Company Number: US-ASTRAZENECA-2019SE47073

PATIENT
  Age: 24840 Day
  Sex: Male

DRUGS (1)
  1. BYDUREON BCISE [Suspect]
     Active Substance: EXENATIDE
     Indication: TYPE 2 DIABETES MELLITUS
     Route: 058

REACTIONS (9)
  - Pain in extremity [Unknown]
  - Staphylococcal infection [Unknown]
  - Laboratory test abnormal [Unknown]
  - Choking [Recovered/Resolved]
  - Device malfunction [Unknown]
  - Blood glucose increased [Recovered/Resolved]
  - Dry throat [Recovered/Resolved]
  - Blood glucose decreased [Unknown]
  - Wrong technique in device usage process [Not Recovered/Not Resolved]

NARRATIVE: CASE EVENT DATE: 20190321
